FAERS Safety Report 5800792-0 (Version None)
Quarter: 2008Q3

REPORT INFORMATION
  Report Type: 
  Country: None (occurrence: None)
  Receive Date: 20080703
  Receipt Date: 20080630
  Transmission Date: 20090109
  Serious: Yes (Other)
  Sender: FDA-Public Use
  Company Number: US-MERCK-0807USA00323

PATIENT
  Age: 56 Year
  Sex: Male

DRUGS (1)
  1. PRINIVIL [Suspect]
     Route: 048

REACTIONS (1)
  - CONVULSION [None]
